FAERS Safety Report 7326441-0 (Version None)
Quarter: 2011Q1

REPORT INFORMATION
  Report Type: 
  Country: None (occurrence: None)
  Receive Date: 20110218
  Receipt Date: 20110202
  Transmission Date: 20110831
  Serious: Yes (Hospitalization)
  Sender: FDA-Public Use
  Company Number: 2011MA001055

PATIENT
  Age: 39 Year

DRUGS (1)
  1. VERAPAMIL HCL [Suspect]
     Dosage: 3.6 G

REACTIONS (11)
  - CARDIAC ARREST [None]
  - CARDIOVASCULAR DISORDER [None]
  - TOXICITY TO VARIOUS AGENTS [None]
  - CARDIOGENIC SHOCK [None]
  - SHOCK [None]
  - DEEP VEIN THROMBOSIS [None]
  - RENAL FAILURE ACUTE [None]
  - IMPLANT SITE HAEMORRHAGE [None]
  - SEPTIC SHOCK [None]
  - OVERDOSE [None]
  - PERIPHERAL ISCHAEMIA [None]
